FAERS Safety Report 15665424 (Version 1)
Quarter: 2018Q4

REPORT INFORMATION
  Report Type: Spontaneous
  Country: CO (occurrence: CO)
  Receive Date: 20181128
  Receipt Date: 20181128
  Transmission Date: 20190205
  Serious: Yes (Other)
  Sender: FDA-Public Use
  Company Number: CO-ASTRAZENECA-2018SF54625

PATIENT
  Sex: Female

DRUGS (1)
  1. LYNPARZA [Suspect]
     Active Substance: OLAPARIB
     Indication: BREAST CANCER
     Route: 048
     Dates: start: 20181117

REACTIONS (4)
  - Malignant neoplasm progression [Unknown]
  - Skin laceration [Not Recovered/Not Resolved]
  - Nodule [Not Recovered/Not Resolved]
  - Axillary pain [Recovering/Resolving]

NARRATIVE: CASE EVENT DATE: 20181117
